FAERS Safety Report 21386092 (Version 2)
Quarter: 2022Q4

REPORT INFORMATION
  Report Type: Report from Study
  Country: MX (occurrence: MX)
  Receive Date: 20220928
  Receipt Date: 20221021
  Transmission Date: 20230113
  Serious: Yes (Hospitalization, Other)
  Sender: FDA-Public Use
  Company Number: MX-NOVARTISPH-NVSC2022MX218878

PATIENT
  Sex: Female

DRUGS (3)
  1. METFORMIN HYDROCHLORIDE\VILDAGLIPTIN [Suspect]
     Active Substance: METFORMIN HYDROCHLORIDE\VILDAGLIPTIN
     Indication: Blood glucose decreased
     Dosage: 1 DOSAGE FORM, BID (1 TABLET IN THE MORNING, 1 TABLET AT NIGHT), (BY MOUTH)
     Route: 048
     Dates: start: 202201, end: 202205
  2. EXFORGE HCT [Suspect]
     Active Substance: AMLODIPINE BESYLATE\HYDROCHLOROTHIAZIDE\VALSARTAN
     Indication: Hypertension
     Dosage: 1 DOSAGE FORM, (BY MOUTH)
     Route: 048
     Dates: start: 202208
  3. LOSARTAN [Concomitant]
     Active Substance: LOSARTAN
     Indication: Hypertension
     Route: 065

REACTIONS (4)
  - Urine ketone body present [Recovering/Resolving]
  - Blood pressure increased [Recovering/Resolving]
  - Poisoning [Unknown]
  - Anxiety [Unknown]
